FAERS Safety Report 24667903 (Version 1)
Quarter: 2024Q4

REPORT INFORMATION
  Report Type: Spontaneous
  Country: NL (occurrence: NL)
  Receive Date: 20241127
  Receipt Date: 20241127
  Transmission Date: 20250115
  Serious: Yes (Life-Threatening, Hospitalization, Other)
  Sender: BRISTOL-MYERS SQUIBB COMPANY
  Company Number: None

PATIENT
  Age: 68 Year
  Sex: Male
  Weight: 59 kg

DRUGS (6)
  1. NIVOLUMAB [Suspect]
     Active Substance: NIVOLUMAB
     Indication: Non-small cell lung cancer
     Dosage: 300MG ONCE PER CYCLE
     Dates: start: 20240531
  2. CLOPIDOGREL [Concomitant]
     Active Substance: CLOPIDOGREL BISULFATE
     Indication: Product used for unknown indication
     Dosage: TABLET, 75 MG (MILLIGRAM)
     Route: 048
  3. PREGABALIN [Concomitant]
     Active Substance: PREGABALIN
     Indication: Product used for unknown indication
     Dosage: CAPSULE, 75 MG (MILLIGRAM)
     Route: 048
  4. THIAMINE [Concomitant]
     Active Substance: THIAMINE
     Indication: Product used for unknown indication
     Dosage: TABLET, 100 MG (MILLIGRAM)
     Route: 048
  5. CALCIUM CARBONATE\CHOLECALCIFEROL [Concomitant]
     Active Substance: CALCIUM CARBONATE\CHOLECALCIFEROL
     Indication: Product used for unknown indication
     Dosage: CHEWABLE TABLET, 1.25 G (GRAMS)/800 UNITS
     Route: 048
  6. PANTOPRAZOLE [Concomitant]
     Active Substance: PANTOPRAZOLE
     Indication: Product used for unknown indication
     Dosage: ENTERIC-COATED TABLET, 40 MG (MILLIGRAMS)
     Route: 048

REACTIONS (3)
  - Immune-mediated hepatitis [Recovering/Resolving]
  - Immune-mediated cholangitis [Recovering/Resolving]
  - Off label use [Unknown]
